FAERS Safety Report 6038783-X (Version None)
Quarter: 2009Q1

REPORT INFORMATION
  Report Type: 
  Country: None (occurrence: None)
  Receive Date: 20090115
  Receipt Date: 20080408
  Transmission Date: 20090719
  Serious: No
  Sender: FDA-Public Use
  Company Number: US-ABBOTT-08P-163-0445881-00

PATIENT
  Sex: Female
  Weight: 54.48 kg

DRUGS (5)
  1. ADVICOR [Suspect]
     Indication: BLOOD CHOLESTEROL INCREASED
     Route: 048
     Dates: start: 20080407, end: 20080408
  2. IBANDRONATE SODIUM [Concomitant]
     Indication: OSTEOPOROSIS
     Route: 048
  3. MULTI-VITAMIN [Concomitant]
     Indication: VITAMIN SUPPLEMENTATION
     Route: 048
  4. CALCIUM [Concomitant]
     Indication: VITAMIN SUPPLEMENTATION
     Dosage: 600
     Route: 048
     Dates: start: 20080408
  5. ASPIRIN [Concomitant]
     Indication: DRUG USE FOR UNKNOWN INDICATION
     Route: 048
     Dates: start: 20080408

REACTIONS (5)
  - DIARRHOEA [None]
  - FLUSHING [None]
  - HEADACHE [None]
  - NAUSEA [None]
  - VOMITING [None]
